FAERS Safety Report 7683751-5 (Version None)
Quarter: 2011Q3

REPORT INFORMATION
  Report Type: 
  Country: None (occurrence: None)
  Receive Date: 20110815
  Receipt Date: 20110812
  Transmission Date: 20111222
  Serious: Yes (Other)
  Sender: FDA-Public Use
  Company Number: US-ABBOTT-11P-163-0844661-00

PATIENT
  Sex: Male
  Weight: 77.18 kg

DRUGS (4)
  1. ASPARTAME [Suspect]
     Indication: PRODUCT USED FOR UNKNOWN INDICATION
  2. ANDROGEL [Suspect]
     Indication: BLOOD TESTOSTERONE DECREASED
     Dosage: 1.5 PACKETS DAILY
     Route: 061
     Dates: start: 20080101
  3. LEVOXYL [Concomitant]
     Indication: HYPOTHYROIDISM
  4. WARFARIN SODIUM [Concomitant]
     Indication: HEART VALVE REPLACEMENT

REACTIONS (5)
  - OEDEMA PERIPHERAL [None]
  - HYPOAESTHESIA [None]
  - PARAESTHESIA [None]
  - PAIN IN EXTREMITY [None]
  - MUSCULAR WEAKNESS [None]
